FAERS Safety Report 12322651 (Version 2)
Quarter: 2016Q2

REPORT INFORMATION
  Report Type: Spontaneous
  Country: US (occurrence: US)
  Receive Date: 20160502
  Receipt Date: 20160510
  Transmission Date: 20160815
  Serious: No
  Sender: FDA-Public Use
  Company Number: US-PFIZER INC-2016227765

PATIENT
  Age: 41 Year
  Sex: Female
  Weight: 127 kg

DRUGS (1)
  1. CHANTIX [Suspect]
     Active Substance: VARENICLINE TARTRATE
     Dosage: STARTER PACK TAKING 2 OR 3 TIMES A DAY WAS UNSURE
     Dates: start: 2015

REACTIONS (3)
  - Malaise [Unknown]
  - Aphonia [Unknown]
  - Bronchitis [Not Recovered/Not Resolved]

NARRATIVE: CASE EVENT DATE: 201604
